FAERS Safety Report 18843855 (Version 1)
Quarter: 2021Q1

REPORT INFORMATION
  Report Type: Report from Study
  Country: CA (occurrence: CA)
  Receive Date: 20210203
  Receipt Date: 20210203
  Transmission Date: 20210419
  Serious: No
  Sender: FDA-Public Use
  Company Number: CA-EXELIXIS-CABO-20031529

PATIENT
  Age: 57 Year
  Sex: Male
  Weight: 97.6 kg

DRUGS (1)
  1. CABOMETYX [Suspect]
     Active Substance: CABOZANTINIB S-MALATE
     Indication: NON-SMALL CELL LUNG CANCER METASTATIC
     Dosage: 60 MG, QD
     Route: 048
     Dates: end: 20200716

REACTIONS (3)
  - Oral candidiasis [Recovered/Resolved]
  - Off label use [Unknown]
  - Oesophagitis [Recovered/Resolved]

NARRATIVE: CASE EVENT DATE: 20200711
